FAERS Safety Report 8043603-8 (Version None)
Quarter: 2012Q1

REPORT INFORMATION
  Report Type: 
  Country: None (occurrence: None)
  Receive Date: 20120112
  Receipt Date: 20120104
  Transmission Date: 20120608
  Serious: Yes (Hospitalization, Other)
  Sender: FDA-Public Use
  Company Number: US-ASTRAZENECA-2009UW07971

PATIENT
  Age: 53 Year
  Sex: Male

DRUGS (1)
  1. NEXIUM [Suspect]
     Route: 048

REACTIONS (8)
  - INTERVERTEBRAL DISC PROTRUSION [None]
  - DIARRHOEA [None]
  - DRUG DOSE OMISSION [None]
  - ADVERSE EVENT [None]
  - DIVERTICULITIS [None]
  - GASTRIC DISORDER [None]
  - MALAISE [None]
  - MUSCLE SPASMS [None]
